FAERS Safety Report 11685232 (Version 1)
Quarter: 2015Q4

REPORT INFORMATION
  Report Type: Spontaneous
  Country: US (occurrence: None)
  Receive Date: 20151029
  Receipt Date: 20151029
  Transmission Date: 20160304
  Serious: Yes (Hospitalization)
  Sender: FDA-Public Use
  Company Number: None

PATIENT
  Age: 54 Year
  Sex: Male
  Weight: 70.2 kg

DRUGS (3)
  1. ATORVASTATIN [Suspect]
     Active Substance: ATORVASTATIN
     Indication: HYPERLIPIDAEMIA
     Route: 048
     Dates: start: 20150318, end: 20150815
  2. ATORVASTATIN [Suspect]
     Active Substance: ATORVASTATIN
     Indication: MYOPATHY
     Route: 048
     Dates: start: 20150318, end: 20150815
  3. ATORVASTATIN [Suspect]
     Active Substance: ATORVASTATIN
     Indication: THROMBOSIS PROPHYLAXIS
     Route: 048
     Dates: start: 20150318, end: 20150815

REACTIONS (4)
  - Hepatic enzyme increased [None]
  - Blood creatinine increased [None]
  - Blood urea increased [None]
  - Myalgia [None]

NARRATIVE: CASE EVENT DATE: 20150815
